FAERS Safety Report 12294355 (Version 1)
Quarter: 2016Q2

REPORT INFORMATION
  Report Type: Spontaneous
  Country: TN (occurrence: TN)
  Receive Date: 20160422
  Receipt Date: 20160422
  Transmission Date: 20160815
  Serious: Yes (Hospitalization)
  Sender: FDA-Public Use
  Company Number: TN-AXELLIA-000913

PATIENT
  Age: 58 Year
  Sex: Male

DRUGS (3)
  1. IMIPENEM [Concomitant]
     Active Substance: IMIPENEM
     Dosage: DOSE OF IMIPENEM WAS INCREASED TO 1 G EVERY 6 HR
  2. VANCOMYCIN [Concomitant]
     Active Substance: VANCOMYCIN
     Indication: SEPTIC SHOCK
     Dosage: ADAPTED TO PLASMA CONCENTRATION
  3. COLISTIN [Suspect]
     Active Substance: COLISTIN
     Indication: SEPTIC SHOCK
     Dosage: 3 ? 10^6 IU EVERY 12 H

REACTIONS (1)
  - Drug resistance [Unknown]
